FAERS Safety Report 5951031-1 (Version None)
Quarter: 2008Q4

REPORT INFORMATION
  Report Type: 
  Country: None (occurrence: None)
  Receive Date: 20081110
  Receipt Date: 20081026
  Transmission Date: 20090506
  Serious: Yes (Hospitalization)
  Sender: FDA-Public Use
  Company Number: ALA_00199_2008

PATIENT
  Sex: Male

DRUGS (3)
  1. REGLAN [Suspect]
     Indication: PROPHYLAXIS
     Dosage: DF
     Dates: start: 20081009, end: 20081010
  2. ANTIBIOTICS [Concomitant]
  3. ANALGESICS [Concomitant]

REACTIONS (7)
  - BLOOD PRESSURE DECREASED [None]
  - COMA [None]
  - MUSCLE DISORDER [None]
  - NEUROLEPTIC MALIGNANT SYNDROME [None]
  - PERIPHERAL COLDNESS [None]
  - RENAL FAILURE [None]
  - SLEEP TALKING [None]
